FAERS Safety Report 4315078-3 (Version None)
Quarter: 2004Q1

REPORT INFORMATION
  Report Type: 
  Country: None (occurrence: None)
  Receive Date: 20040310
  Receipt Date: 20040205
  Transmission Date: 20041129
  Serious: Yes (Hospitalization)
  Sender: FDA-Public Use
  Company Number: BR-ROCHE-358350

PATIENT
  Age: 24 Year
  Sex: Female

DRUGS (1)
  1. ACCUTANE [Suspect]
     Indication: ACNE
     Route: 048
     Dates: start: 20030807, end: 20031215

REACTIONS (8)
  - CYTOMEGALOVIRUS INFECTION [None]
  - HAEMOGLOBIN DECREASED [None]
  - HORDEOLUM [None]
  - LEUKOPENIA [None]
  - PANCYTOPENIA [None]
  - PYREXIA [None]
  - STAPHYLOCOCCAL INFECTION [None]
  - THROMBOCYTOPENIA [None]
